FAERS Safety Report 24030305 (Version 1)
Quarter: 2024Q2

REPORT INFORMATION
  Report Type: Spontaneous
  Country: MY (occurrence: MY)
  Receive Date: 20240628
  Receipt Date: 20240628
  Transmission Date: 20240716
  Serious: Yes (Other)
  Sender: FDA-Public Use
  Company Number: MY-FreseniusKabi-FK202409908

PATIENT
  Age: 30 Year
  Sex: Female

DRUGS (1)
  1. ROCURONIUM BROMIDE [Suspect]
     Active Substance: ROCURONIUM BROMIDE
     Indication: Induction of anaesthesia
     Dosage: FORM OF ADMIN-SOLUTION FOR INJECTION/INFUSION?ROUTE OF ADMIN: INTRAVENOUS

REACTIONS (1)
  - Anaphylactic shock [Recovered/Resolved]
